FAERS Safety Report 14318417 (Version 7)
Quarter: 2018Q1

REPORT INFORMATION
  Report Type: Spontaneous
  Country: JP (occurrence: JP)
  Receive Date: 20171222
  Receipt Date: 20180307
  Transmission Date: 20180509
  Serious: Yes (Life-Threatening, Hospitalization, Other)
  Sender: FDA-Public Use
  Company Number: JP-GLAXOSMITHKLINE-JP2017JPN197535

PATIENT
  Age: 71 Year
  Sex: Female
  Weight: 42 kg

DRUGS (7)
  1. FASLODEX [Concomitant]
     Active Substance: FULVESTRANT
     Indication: BREAST DISORDER
     Dosage: UNK
     Dates: start: 20171012
  2. MEMARY OD [Concomitant]
     Active Substance: MEMANTINE HYDROCHLORIDE
     Indication: DEMENTIA ALZHEIMER^S TYPE
  3. ROZEREM [Concomitant]
     Active Substance: RAMELTEON
     Indication: DEMENTIA ALZHEIMER^S TYPE
  4. ROZEREM [Concomitant]
     Active Substance: RAMELTEON
     Indication: INSOMNIA
  5. LAMICTAL [Suspect]
     Active Substance: LAMOTRIGINE
     Indication: BIPOLAR DISORDER
     Dosage: 25 MG, QD
     Route: 048
     Dates: start: 20171012, end: 20171023
  6. ROZEREM [Concomitant]
     Active Substance: RAMELTEON
     Indication: AFFECTIVE DISORDER
     Dosage: 8 MG, QD
     Dates: start: 20171012
  7. MEMARY OD [Concomitant]
     Active Substance: MEMANTINE HYDROCHLORIDE
     Indication: AFFECTIVE DISORDER
     Dosage: 10 MG, QD
     Dates: start: 20171013, end: 20171026

REACTIONS (14)
  - Oral mucosal eruption [Recovering/Resolving]
  - Stevens-Johnson syndrome [Recovered/Resolved with Sequelae]
  - Generalised erythema [Recovering/Resolving]
  - Altered state of consciousness [Recovering/Resolving]
  - Oral mucosa erosion [Recovering/Resolving]
  - Rash [Recovered/Resolved]
  - Pyrexia [Recovering/Resolving]
  - Hypophagia [Unknown]
  - General physical health deterioration [Unknown]
  - Drug eruption [Recovering/Resolving]
  - Gastric fistula [Not Recovered/Not Resolved]
  - Dysphagia [Unknown]
  - Lip erosion [Recovering/Resolving]
  - Muscular weakness [Unknown]

NARRATIVE: CASE EVENT DATE: 201710
